FAERS Safety Report 14821649 (Version 1)
Quarter: 2018Q2

REPORT INFORMATION
  Report Type: Spontaneous
  Country: GB (occurrence: GB)
  Receive Date: 20180427
  Receipt Date: 20180427
  Transmission Date: 20180711
  Serious: Yes (Other)
  Sender: FDA-Public Use
  Company Number: GB-GLAXOSMITHKLINE-GB2018069418

PATIENT
  Age: 71 Year
  Sex: Female
  Weight: 80 kg

DRUGS (19)
  1. ACETIC ACID. [Concomitant]
     Active Substance: ACETIC ACID
     Dosage: SPRAY
     Route: 065
     Dates: start: 20180109, end: 20180116
  2. CLOBETASOL PROPIONATE. [Concomitant]
     Active Substance: CLOBETASOL PROPIONATE
     Dosage: APPLY 1-2 TIMES/DAY
     Route: 065
     Dates: start: 20180201, end: 20180301
  3. TRAMADOL. [Concomitant]
     Active Substance: TRAMADOL
     Dosage: ONE OR TWO TO BE TAKEN TWICE A DAY
     Route: 065
  4. AMOXICILLIN. [Concomitant]
     Active Substance: AMOXICILLIN
     Dosage: 3 DF, QD
     Route: 065
     Dates: start: 20180109, end: 20180114
  5. MEBEVERINE HYDROCHLORIDE [Concomitant]
     Active Substance: MEBEVERINE HYDROCHLORIDE
     Dosage: 3 DF, QD
     Route: 065
     Dates: start: 20170223
  6. PARACETAMOL [Concomitant]
     Active Substance: ACETAMINOPHEN
     Dosage: TAKE 1 OR 2 4 TIMES/DAY
     Route: 065
  7. FLUTICASONE PROPIONATE. [Concomitant]
     Active Substance: FLUTICASONE PROPIONATE
     Dosage: SPRAYS EACH NOSTRIL
     Route: 045
     Dates: start: 20170223
  8. TERBINAFINE. [Suspect]
     Active Substance: TERBINAFINE
     Indication: PRODUCT USED FOR UNKNOWN INDICATION
     Dosage: UNK
     Route: 065
  9. ROSUVASTATIN. [Concomitant]
     Active Substance: ROSUVASTATIN
     Dosage: 1 DF, QD
     Route: 065
     Dates: start: 20170223
  10. NITROFURANTOIN. [Concomitant]
     Active Substance: NITROFURANTOIN
     Dosage: 2 DF, QD
     Route: 065
     Dates: start: 20180319, end: 20180322
  11. PROPRANOLOL [Concomitant]
     Active Substance: PROPRANOLOL HYDROCHLORIDE
     Dosage: 2 DF, QD
     Route: 065
     Dates: start: 20170223
  12. LANSOPRAZOLE. [Concomitant]
     Active Substance: LANSOPRAZOLE
     Dosage: 1 DF, QD
     Route: 065
     Dates: start: 20170223
  13. HYDROXOCOBALAMIN [Concomitant]
     Active Substance: HYDROXOCOBALAMIN
     Dosage: USE AS DIRECTED
     Route: 065
  14. LOPERAMIDE [Concomitant]
     Active Substance: LOPERAMIDE
     Dosage: 4 DF, QD
     Route: 065
     Dates: start: 20170223
  15. ISPAGHULA EXTRACT\PSYLLIUM [Concomitant]
     Active Substance: HERBALS\PLANTAGO OVATA SEED\PLANTAGO SEED
     Dosage: 2 DF, QD
     Route: 065
     Dates: start: 20170223
  16. CETIRIZINE [Concomitant]
     Active Substance: CETIRIZINE HYDROCHLORIDE
     Dosage: 1 DF, QD
     Route: 065
     Dates: start: 20170223
  17. ACCRETE D3 [Concomitant]
     Dosage: SWALLOWWHOLE
     Route: 065
     Dates: start: 20170223, end: 20180111
  18. KETOCONAZOLE. [Concomitant]
     Active Substance: KETOCONAZOLE
     Dosage: 2 DF, WE
     Route: 065
     Dates: start: 20180403
  19. CALCI-D [Concomitant]
     Dosage: 1 DF, QD
     Route: 065
     Dates: start: 20180109

REACTIONS (5)
  - Dizziness [Recovering/Resolving]
  - Diarrhoea [Unknown]
  - Malaise [Unknown]
  - Nausea [Recovering/Resolving]
  - Vomiting [Recovering/Resolving]

NARRATIVE: CASE EVENT DATE: 20180406
